FAERS Safety Report 7219508-9 (Version None)
Quarter: 2011Q1

REPORT INFORMATION
  Report Type: 
  Country: None (occurrence: None)
  Receive Date: 20110111
  Receipt Date: 20101228
  Transmission Date: 20110831
  Serious: Yes (Death, Other)
  Sender: FDA-Public Use
  Company Number: JP-GENZYME-FLUD-1000626

PATIENT
  Sex: Female
  Weight: 40 kg

DRUGS (5)
  1. THYMOGLOBULIN [Suspect]
     Indication: ACUTE GRAFT VERSUS HOST DISEASE
     Dosage: 50 MG, QD
     Route: 042
     Dates: start: 20090618, end: 20090618
  2. FLUDARA [Suspect]
     Indication: STEM CELL TRANSPLANT
     Dosage: UNK
     Route: 065
     Dates: start: 20090101, end: 20090101
  3. MELPHALAN [Concomitant]
     Indication: STEM CELL TRANSPLANT
     Dosage: UNK
     Route: 065
  4. THYMOGLOBULIN [Suspect]
     Indication: STEM CELL TRANSPLANT
     Dosage: UNK
     Route: 042
     Dates: start: 20090516, end: 20090519
  5. CYTARABINE [Concomitant]
     Indication: STEM CELL TRANSPLANT
     Dosage: UNK
     Route: 065

REACTIONS (5)
  - PNEUMONIA [None]
  - ACUTE GRAFT VERSUS HOST DISEASE IN LIVER [None]
  - MULTI-ORGAN FAILURE [None]
  - RENAL FAILURE [None]
  - RESPIRATORY FAILURE [None]
